FAERS Safety Report 7622766-X (Version None)
Quarter: 2011Q3

REPORT INFORMATION
  Report Type: 
  Country: None (occurrence: None)
  Receive Date: 20110719
  Receipt Date: 20110719
  Transmission Date: 20111222
  Serious: Yes (Hospitalization)
  Sender: FDA-Public Use
  Company Number: None

PATIENT
  Age: 49 Year
  Sex: Male

DRUGS (1)
  1. ALEFACEPT [Suspect]
     Indication: IMMUNOSUPPRESSANT DRUG THERAPY
     Dosage: ALEFACEPT Q WEEK SQ
     Route: 058
     Dates: start: 20101201, end: 20110301

REACTIONS (3)
  - DIARRHOEA [None]
  - CHILLS [None]
  - PAIN [None]
